FAERS Safety Report 19685264 (Version 6)
Quarter: 2021Q3

REPORT INFORMATION
  Report Type: Report from Study
  Country: US (occurrence: US)
  Receive Date: 20210811
  Receipt Date: 20210930
  Transmission Date: 20211014
  Serious: Yes (Death, Life-Threatening, Hospitalization)
  Sender: FDA-Public Use
  Company Number: US-AMRYT PHARMACEUTICALS DAC-AEGR005089

PATIENT
  Age: 41 Year
  Sex: Female
  Weight: 60.3 kg

DRUGS (39)
  1. CYANOCOBALAMIN. [Concomitant]
     Active Substance: CYANOCOBALAMIN
     Dosage: 1 MG, QD
     Route: 030
     Dates: start: 20150708, end: 20150708
  2. ERGOCALCIFEROL. [Concomitant]
     Active Substance: ERGOCALCIFEROL
     Indication: SUPPLEMENTATION THERAPY
     Dosage: 5000 UNITS, OD
     Route: 048
     Dates: start: 20170104, end: 20170104
  3. LEVOTHYROXINE. [Concomitant]
     Active Substance: LEVOTHYROXINE
     Indication: HYPOTHYROIDISM
     Dosage: 300 ?G, 4 DAYS A WEEK
     Route: 048
     Dates: start: 20150415, end: 20171122
  4. INSULIN LISPRO [Concomitant]
     Active Substance: INSULIN LISPRO
     Dosage: 75 UNITS, QD
     Route: 058
     Dates: start: 20190302
  5. SYNTHROID [Concomitant]
     Active Substance: LEVOTHYROXINE SODIUM
     Indication: PRODUCT USED FOR UNKNOWN INDICATION
  6. METRELEPTIN [Suspect]
     Active Substance: METRELEPTIN
     Indication: ACQUIRED LIPOATROPHIC DIABETES
  7. CYANOCOBALAMIN. [Concomitant]
     Active Substance: CYANOCOBALAMIN
     Indication: VITAMIN B12 DECREASED
     Dosage: 1 DF, OD
     Route: 048
     Dates: end: 20150708
  8. LEVOTHYROXINE. [Concomitant]
     Active Substance: LEVOTHYROXINE
     Dosage: 350 UG, 4 TIMES PER WEEK
     Route: 048
     Dates: start: 20171123, end: 20210209
  9. HUMALOG [Concomitant]
     Active Substance: INSULIN LISPRO
     Indication: PRODUCT USED FOR UNKNOWN INDICATION
  10. LANTUS [Concomitant]
     Active Substance: INSULIN GLARGINE
     Indication: DIABETES MELLITUS
     Dosage: 40 UNITS, QD
     Route: 058
     Dates: start: 20141231, end: 20150415
  11. LANTUS [Concomitant]
     Active Substance: INSULIN GLARGINE
     Dosage: 25 UNITS, OD
     Route: 058
     Dates: start: 20150415, end: 2017
  12. LANTUS [Concomitant]
     Active Substance: INSULIN GLARGINE
     Dosage: 30 UNITS, QPM
     Route: 058
     Dates: start: 202002
  13. CETIRIZINE [Concomitant]
     Active Substance: CETIRIZINE HYDROCHLORIDE
     Indication: URTICARIA
     Dosage: 10 MG, PRN
     Route: 048
     Dates: end: 2014
  14. ZITHROMAX [Concomitant]
     Active Substance: AZITHROMYCIN DIHYDRATE
     Indication: PNEUMONIA
     Dosage: 2 PACKS AS NEEDED
     Route: 048
     Dates: start: 201501, end: 201502
  15. LEVOTHYROXINE. [Concomitant]
     Active Substance: LEVOTHYROXINE
     Dosage: 175 UG, QD
     Route: 048
     Dates: start: 20210210
  16. DOXYCYCLINE. [Concomitant]
     Active Substance: DOXYCYCLINE
     Indication: IMMUNODEFICIENCY COMMON VARIABLE
     Dosage: 100 MG, BID
     Route: 048
     Dates: start: 20180214, end: 20180228
  17. PRIVIGEN [Concomitant]
     Active Substance: HUMAN IMMUNOGLOBULIN G
     Indication: PRODUCT USED FOR UNKNOWN INDICATION
  18. IMMUNE GLOBULIN [Concomitant]
     Indication: IMMUNODEFICIENCY COMMON VARIABLE
     Dosage: 50 G, EVERY 3 WEEKS
     Route: 042
  19. LEVAQUIN [Concomitant]
     Active Substance: LEVOFLOXACIN
     Indication: PNEUMONIA
     Dosage: 500 MG, OD
     Route: 048
     Dates: start: 20150211, end: 20150225
  20. LEVOTHYROXINE. [Concomitant]
     Active Substance: LEVOTHYROXINE
     Dosage: 450 ?G, 3 DAYS A WEEK
     Route: 048
     Dates: start: 20150415, end: 20171122
  21. NOVOLOG [Concomitant]
     Active Substance: INSULIN ASPART
     Indication: DIABETES MELLITUS
     Dosage: 70 UNITS, BID
     Route: 058
     Dates: start: 201809, end: 20190301
  22. ZESTRIL [Concomitant]
     Active Substance: LISINOPRIL
     Indication: PRODUCT USED FOR UNKNOWN INDICATION
  23. NASACORT [Concomitant]
     Active Substance: TRIAMCINOLONE ACETONIDE
     Indication: PNEUMONIA
     Dosage: 1 DF, BID
     Route: 045
     Dates: start: 20150211, end: 201502
  24. DOXYCYCLINE. [Concomitant]
     Active Substance: DOXYCYCLINE
     Dosage: 100 MG, BID MWF
     Route: 048
     Dates: start: 20180418
  25. AZITHROMYCIN ANHYDROUS. [Concomitant]
     Active Substance: AZITHROMYCIN ANHYDROUS
     Dosage: 250 MG 3 TIMES A WEEK
     Route: 048
     Dates: start: 2017, end: 2018
  26. ERGOCALCIFEROL. [Concomitant]
     Active Substance: ERGOCALCIFEROL
     Dosage: 50000 IU WEEKLY
     Route: 048
     Dates: start: 20170104, end: 201809
  27. LEVOTHYROXINE. [Concomitant]
     Active Substance: LEVOTHYROXINE
     Dosage: 450 UG, 3 DAYS A WEEK
     Route: 048
     Dates: start: 20171123, end: 20210209
  28. INSULIN LISPRO [Concomitant]
     Active Substance: INSULIN LISPRO
     Indication: DIABETES MELLITUS
     Dosage: 45 UNITS, OD
     Dates: start: 2014, end: 2018
  29. BACTERIOSTATIC WATER [Concomitant]
     Active Substance: WATER
     Indication: PRODUCT USED FOR UNKNOWN INDICATION
  30. METRELEPTIN [Suspect]
     Active Substance: METRELEPTIN
     Indication: LIPODYSTROPHY ACQUIRED
     Dosage: 5 MILLIGRAM, QD
     Route: 058
     Dates: start: 20141231
  31. AZITHROMYCIN ANHYDROUS. [Concomitant]
     Active Substance: AZITHROMYCIN ANHYDROUS
     Indication: IMMUNODEFICIENCY COMMON VARIABLE
     Dosage: 500 MILLIGRAM, QD
     Route: 048
     Dates: start: 2014, end: 2016
  32. AZITHROMYCIN ANHYDROUS. [Concomitant]
     Active Substance: AZITHROMYCIN ANHYDROUS
     Dosage: 250 MG, 2 TABX1D, 1 TABX4D
     Route: 048
     Dates: start: 201801, end: 20200901
  33. LANTUS [Concomitant]
     Active Substance: INSULIN GLARGINE
     Dosage: 10 UNITS, PRN
     Route: 058
     Dates: start: 2017, end: 20190903
  34. LANTUS [Concomitant]
     Active Substance: INSULIN GLARGINE
     Dosage: 30 UNITS, QPM
     Route: 058
     Dates: start: 20190904, end: 202002
  35. CYANOCOBALAMIN. [Concomitant]
     Active Substance: CYANOCOBALAMIN
     Dosage: 4 UG, MONTHLY
     Route: 058
     Dates: start: 20150708, end: 201508
  36. ZITHROMAX [Concomitant]
     Active Substance: AZITHROMYCIN DIHYDRATE
     Indication: IMMUNODEFICIENCY COMMON VARIABLE
     Dosage: 500 MG, QD
     Route: 048
     Dates: start: 2014, end: 2016
  37. ZITHROMAX [Concomitant]
     Active Substance: AZITHROMYCIN DIHYDRATE
     Dosage: 250 MG, 3 TIMES PER WEEK
     Route: 048
     Dates: start: 201710, end: 201801
  38. SALICYLIC ACID. [Concomitant]
     Active Substance: SALICYLIC ACID
     Indication: SKIN PAPILLOMA
     Dosage: 1 DF, QOD
     Route: 061
     Dates: start: 20150409, end: 201504
  39. MULTIVITAMIN                       /07504101/ [Concomitant]
     Active Substance: VITAMINS
     Indication: SUPPLEMENTATION THERAPY
     Dosage: 1 DF, QD
     Route: 048
     Dates: start: 2018

REACTIONS (6)
  - Endotracheal intubation [Unknown]
  - Aortic valve incompetence [Fatal]
  - Palpitations [Recovered/Resolved]
  - Endocarditis [Fatal]
  - Portal hypertension [Fatal]
  - Hospitalisation [Unknown]

NARRATIVE: CASE EVENT DATE: 20201117
